FAERS Safety Report 18773763 (Version 5)
Quarter: 2021Q4

REPORT INFORMATION
  Report Type: Report from Study
  Country: CA (occurrence: CA)
  Receive Date: 20210122
  Receipt Date: 20211129
  Transmission Date: 20220303
  Serious: Yes (Hospitalization, Other)
  Sender: FDA-Public Use
  Company Number: CA-SHIRE-CA202032141

PATIENT
  Age: 76 Year
  Sex: Male

DRUGS (23)
  1. HUMAN IMMUNOGLOBULIN G [Suspect]
     Active Substance: HUMAN IMMUNOGLOBULIN G
     Indication: Secondary immunodeficiency
     Dosage: 8 GRAM, 1X/WEEK
     Route: 058
     Dates: start: 20200520
  2. GAZYVA [Suspect]
     Active Substance: OBINUTUZUMAB
     Indication: Chronic lymphocytic leukaemia
     Dosage: 100 MILLILITER
     Route: 065
     Dates: start: 20211020
  3. GAZYVA [Suspect]
     Active Substance: OBINUTUZUMAB
     Dosage: 900 MILLILITER
     Route: 065
     Dates: start: 20211021
  4. SYMBICORT [Concomitant]
     Active Substance: BUDESONIDE\FORMOTEROL FUMARATE DIHYDRATE
     Dosage: 2 PUFFS IN THE MORNING AND 2 IN THE EVENING
     Route: 065
  5. SILODOSIN [Concomitant]
     Active Substance: SILODOSIN
     Dosage: 8 MILLIGRAM, QD
     Route: 065
  6. VALACYCLOVIR HYDROCHLORIDE [Concomitant]
     Active Substance: VALACYCLOVIR HYDROCHLORIDE
     Dosage: 500 MILLIGRAM, BID
     Route: 065
  7. VITAMIN D3 [Concomitant]
     Active Substance: CHOLECALCIFEROL
     Dosage: 1000 INTERNATIONAL UNIT, BID
     Route: 065
  8. GAVISCON [Concomitant]
     Active Substance: ALUMINUM HYDROXIDE\MAGNESIUM CARBONATE
     Dosage: 313 MILLIGRAM
     Route: 065
  9. IMODIUM [Concomitant]
     Active Substance: LOPERAMIDE HYDROCHLORIDE
     Indication: Colon cancer
     Dosage: UNK, QD
     Route: 065
  10. IMODIUM [Concomitant]
     Active Substance: LOPERAMIDE HYDROCHLORIDE
     Dosage: 2 MILLIGRAM, QD
  11. GAS-X [Concomitant]
     Active Substance: DIMETHICONE
     Indication: Flatulence
     Dosage: 180 MILLIGRAM, TID
     Route: 065
  12. CANNABIDIOL\HERBALS [Concomitant]
     Active Substance: CANNABIDIOL\HERBALS
     Dosage: 1.0 MG/ML, QD
     Route: 065
  13. CANNABIDIOL\HERBALS [Concomitant]
     Active Substance: CANNABIDIOL\HERBALS
     Dosage: 2.0 MG/ML, QD
     Route: 065
  14. CANNABIDIOL\HERBALS [Concomitant]
     Active Substance: CANNABIDIOL\HERBALS
     Dosage: 0.6 MG/ML, BEFORE BED
     Route: 065
  15. TYLENOL COLD [Concomitant]
     Dosage: 500 MILLIGRAM, QD
     Route: 065
  16. TYLENOL COLD [Concomitant]
     Dosage: 500 MILLIGRAM, 2 BEFORE BED
     Route: 065
  17. ALGINIC ACID [Concomitant]
     Active Substance: ALGINIC ACID
     Dosage: 63 MILLIGRAM
     Route: 065
  18. MAGNESIUM CARBONATE [Concomitant]
     Active Substance: MAGNESIUM CARBONATE
     Dosage: 3 OR 4 BEFORE BED, QD
     Route: 065
  19. APIXABAN [Concomitant]
     Active Substance: APIXABAN
     Indication: Atrial fibrillation
     Dosage: 5 MILLIGRAM, BID
     Route: 065
     Dates: start: 202101
  20. METOPROLOL [Concomitant]
     Active Substance: METOPROLOL
     Indication: Atrial fibrillation
     Dosage: 75 MILLIGRAM, BID
     Route: 065
     Dates: start: 202101
  21. FUROSEMIDE [Concomitant]
     Active Substance: FUROSEMIDE
     Indication: Oedema due to cardiac disease
     Dosage: 20 MILLIGRAM, QD
     Route: 065
     Dates: start: 202101
  22. SIMETHICONE (DIMETHICONE) [Concomitant]
     Active Substance: DIMETHICONE
     Dosage: 180 MILLIGRAM, TID
     Dates: start: 202101
  23. Eye Vit [Concomitant]
     Dosage: UNK
     Route: 065

REACTIONS (12)
  - Chronic lymphocytic leukaemia [Recovering/Resolving]
  - Asthenia [Recovering/Resolving]
  - Dyspnoea [Recovering/Resolving]
  - Headache [Recovering/Resolving]
  - Nausea [Recovering/Resolving]
  - Diarrhoea [Recovering/Resolving]
  - Cough [Recovered/Resolved]
  - Colon cancer [Unknown]
  - Atrial fibrillation [Unknown]
  - Flatulence [Unknown]
  - Oedema due to cardiac disease [Unknown]
  - Off label use [Unknown]

NARRATIVE: CASE EVENT DATE: 20201001
